FAERS Safety Report 9070291 (Version 3)
Quarter: 2013Q2

REPORT INFORMATION
  Report Type: Spontaneous
  Country: DE (occurrence: DE)
  Receive Date: 20130215
  Receipt Date: 20130425
  Transmission Date: 20140414
  Serious: Yes (Hospitalization, Other)
  Sender: FDA-Public Use
  Company Number: DE-AMGEN-DEUSP2013010593

PATIENT
  Age: 71 Year
  Sex: Female

DRUGS (3)
  1. ENBREL [Suspect]
     Indication: PSORIATIC ARTHROPATHY
     Dosage: 50 MG, 1X WEEKLY
     Dates: start: 20091208, end: 20130128
  2. ENBREL [Suspect]
     Dosage: 25 MG, WEEKLY
     Route: 058
  3. IBUPROFEN [Concomitant]
     Indication: OSTEOARTHRITIS
     Dosage: 600 MG, AS NEEDED
     Route: 048

REACTIONS (3)
  - Osteoarthritis [Unknown]
  - Pain [Unknown]
  - Herpes virus infection [Unknown]
